FAERS Safety Report 4307747-6 (Version None)
Quarter: 2004Q1

REPORT INFORMATION
  Report Type: 
  Country: None (occurrence: None)
  Receive Date: 20040227
  Receipt Date: 20040227
  Transmission Date: 20041129
  Serious: Yes (Hospitalization)
  Sender: FDA-Public Use
  Company Number: None

PATIENT
  Age: 55 Year
  Sex: Female

DRUGS (2)
  1. REGLAN [Suspect]
     Dosage: 10 MG TID PTA
  2. SOTOLOL [Suspect]
     Dosage: 80 MG BID

REACTIONS (1)
  - VENTRICULAR FIBRILLATION [None]
